FAERS Safety Report 5608230-8 (Version None)
Quarter: 2008Q1

REPORT INFORMATION
  Report Type: 
  Country: None (occurrence: None)
  Receive Date: 20080125
  Receipt Date: 20080108
  Transmission Date: 20080703
  Serious: Yes (Hospitalization)
  Sender: FDA-Public Use
  Company Number: JPI-P-002897

PATIENT
  Age: 18 Year
  Sex: Male

DRUGS (2)
  1. XYREM [Suspect]
     Indication: DRUG USE FOR UNKNOWN INDICATION
     Dosage: 6 GM (3 GM, 2 IN 1 D), ORAL
     Route: 048
     Dates: start: 20071126
  2. MODAFINIL [Concomitant]

REACTIONS (3)
  - HYPOGLYCAEMIA [None]
  - INSOMNIA [None]
  - MYOCLONUS [None]
